FAERS Safety Report 6719258-9 (Version None)
Quarter: 2010Q2

REPORT INFORMATION
  Report Type: 
  Country: None (occurrence: None)
  Receive Date: 20100511
  Receipt Date: 20100429
  Transmission Date: 20101027
  Serious: Yes (Death, Life-Threatening, Hospitalization, Other)
  Sender: FDA-Public Use
  Company Number: IT-B.I. PHARMACEUTICALS,INC./RIDGEFIELD-2010-DE-02421GD

PATIENT
  Sex: Male

DRUGS (12)
  1. TIPRANAVIR [Suspect]
     Indication: DRUG EXPOSURE DURING PREGNANCY
     Route: 064
  2. STAVUDINE [Suspect]
     Indication: DRUG EXPOSURE DURING PREGNANCY
     Route: 064
  3. TENOFOVIR DISOPROXIL FUMARATE [Suspect]
     Indication: DRUG EXPOSURE DURING PREGNANCY
     Route: 064
  4. RITONAVIR [Suspect]
     Indication: DRUG EXPOSURE DURING PREGNANCY
     Route: 064
  5. ENFUVIRTIDE [Suspect]
     Indication: DRUG EXPOSURE DURING PREGNANCY
     Route: 064
  6. ZIDOVUDINE [Suspect]
     Indication: PROPHYLAXIS
     Dosage: 3 MG/KG
     Route: 042
  7. ZIDOVUDINE [Suspect]
     Indication: HUMAN IMMUNODEFICIENCY VIRUS TRANSMISSION
  8. LAMIVUDINE [Suspect]
     Indication: PROPHYLAXIS
     Dosage: 4 MG/KG
     Route: 048
  9. LAMIVUDINE [Suspect]
     Indication: HUMAN IMMUNODEFICIENCY VIRUS TRANSMISSION
  10. AMPICILLIN AND SULBACTAM [Concomitant]
     Indication: ANTIBIOTIC PROPHYLAXIS
  11. CLARITHROMYCIN [Concomitant]
     Indication: ANTIBIOTIC PROPHYLAXIS
  12. AMIKACIN [Concomitant]
     Indication: ANTIBIOTIC PROPHYLAXIS

REACTIONS (12)
  - ABDOMINAL DISTENSION [None]
  - CHOLESTASIS [None]
  - HYPERGLYCAEMIA [None]
  - ILEAL PERFORATION [None]
  - INFANTILE APNOEIC ATTACK [None]
  - METABOLIC ACIDOSIS [None]
  - NECROTISING COLITIS [None]
  - NEONATAL ASPHYXIA [None]
  - NEONATAL RESPIRATORY DISTRESS SYNDROME [None]
  - PNEUMOPERITONEUM [None]
  - PREMATURE BABY [None]
  - SMALL FOR DATES BABY [None]
